FAERS Safety Report 25023245 (Version 2)
Quarter: 2025Q1

REPORT INFORMATION
  Report Type: Report from Study
  Country: GB (occurrence: GB)
  Receive Date: 20250228
  Receipt Date: 20250313
  Transmission Date: 20250408
  Serious: Yes (Hospitalization, Other)
  Sender: AMGEN
  Company Number: GB-AMGEN-GBRSL2025037154

PATIENT
  Age: 77 Year
  Sex: Female

DRUGS (8)
  1. REPATHA [Suspect]
     Active Substance: EVOLOCUMAB
     Indication: Hypercholesterolaemia
     Dosage: 140 MILLIGRAM, Q2WK
     Route: 058
     Dates: start: 20170101
  2. ASPIRIN [Concomitant]
     Active Substance: ASPIRIN
  3. WARFARIN [Concomitant]
     Active Substance: WARFARIN
  4. OMEPRAZOLE [Concomitant]
     Active Substance: OMEPRAZOLE
  5. RAMIPRIL [Concomitant]
     Active Substance: RAMIPRIL
  6. NAPROXEN [Concomitant]
     Active Substance: NAPROXEN
  7. EZETIMIBE [Concomitant]
     Active Substance: EZETIMIBE
  8. THYROXINE [Concomitant]
     Active Substance: LEVOTHYROXINE

REACTIONS (11)
  - Cardiac operation [Unknown]
  - Diabetes mellitus [Unknown]
  - Injection site bruising [Unknown]
  - Injection site mass [Unknown]
  - Injection site swelling [Recovered/Resolved]
  - Weight decreased [Unknown]
  - Memory impairment [Unknown]
  - Injection site pain [Unknown]
  - Urticaria [Unknown]
  - Abdominal discomfort [Unknown]
  - Injection site reaction [Unknown]

NARRATIVE: CASE EVENT DATE: 20250209
